FAERS Safety Report 7816200-4 (Version None)
Quarter: 2011Q4

REPORT INFORMATION
  Report Type: 
  Country: None (occurrence: None)
  Receive Date: 20111015
  Receipt Date: 20111009
  Transmission Date: 20120403
  Serious: Yes (Death, Hospitalization)
  Sender: FDA-Public Use
  Company Number: DZ-ROCHE-1003360

PATIENT
  Sex: Female

DRUGS (2)
  1. MABTHERA [Suspect]
     Indication: SYSTEMIC LUPUS ERYTHEMATOSUS
     Dosage: FIRST AND SECOND INFUSION WELL TOLERATED
     Route: 042
     Dates: start: 20100101
  2. CORTICOID [Concomitant]
     Route: 048

REACTIONS (5)
  - GENERAL PHYSICAL CONDITION ABNORMAL [None]
  - DYSPNOEA [None]
  - TUBERCULOSIS [None]
  - CYANOSIS [None]
  - TACHYPNOEA [None]
